FAERS Safety Report 22744964 (Version 3)
Quarter: 2024Q2

REPORT INFORMATION
  Report Type: Report from Study
  Country: CA (occurrence: CA)
  Receive Date: 20230725
  Receipt Date: 20240424
  Transmission Date: 20240716
  Serious: Yes (Death, Life-Threatening, Hospitalization, Other)
  Sender: FDA-Public Use
  Company Number: CA-CELLTRION INC.-2023CA014491

PATIENT

DRUGS (2)
  1. RITUXIMAB [Suspect]
     Active Substance: RITUXIMAB
     Indication: Pulmonary fibrosis
     Dosage: 375 MG/M2, 1 EVERY 2 DAYS
  2. LUSPATERCEPT [Suspect]
     Active Substance: LUSPATERCEPT
     Indication: Myelodysplastic syndrome
     Dosage: 1 MG/KG, 1 EVERY 3 WEEKS
     Route: 058

REACTIONS (13)
  - Lung infiltration [Fatal]
  - Pleural effusion [Fatal]
  - White blood cell count increased [Fatal]
  - Malaise [Fatal]
  - Red blood cell count decreased [Fatal]
  - Haemoglobin decreased [Fatal]
  - Acute kidney injury [Fatal]
  - Pneumonia staphylococcal [Fatal]
  - Endocarditis staphylococcal [Fatal]
  - Sepsis [Fatal]
  - Staphylococcal sepsis [Fatal]
  - Treatment noncompliance [Fatal]
  - Intentional product use issue [Unknown]
